FAERS Safety Report 5901933-7 (Version None)
Quarter: 2008Q3

REPORT INFORMATION
  Report Type: 
  Country: None (occurrence: None)
  Receive Date: 20080929
  Receipt Date: 20080314
  Transmission Date: 20090109
  Serious: No
  Sender: FDA-Public Use
  Company Number: US-BRISTOL-MYERS SQUIBB COMPANY-14116099

PATIENT
  Age: 46 Year
  Sex: Female
  Weight: 48 kg

DRUGS (4)
  1. BUSPAR [Suspect]
     Indication: ANXIETY
     Dates: start: 20071201
  2. BUSPAR [Suspect]
     Indication: DEPRESSION
     Dates: start: 20071201
  3. KLONOPIN [Concomitant]
  4. PROZAC [Concomitant]

REACTIONS (1)
  - ANXIETY [None]
